FAERS Safety Report 5291439-3 (Version None)
Quarter: 2007Q2

REPORT INFORMATION
  Report Type: 
  Country: None (occurrence: None)
  Receive Date: 20070402
  Receipt Date: 20070315
  Transmission Date: 20071010
  Serious: Yes (Hospitalization)
  Sender: FDA-Public Use
  Company Number: 8022831

PATIENT
  Age: 16 Year
  Sex: Male

DRUGS (1)
  1. KEPPRA [Suspect]
     Dates: start: 20061101

REACTIONS (5)
  - ABNORMAL BEHAVIOUR [None]
  - AGGRESSION [None]
  - IMPULSE-CONTROL DISORDER [None]
  - PHYSICAL ASSAULT [None]
  - SPEECH DISORDER [None]
